FAERS Safety Report 5720436-6 (Version None)
Quarter: 2008Q2

REPORT INFORMATION
  Report Type: 
  Country: None (occurrence: None)
  Receive Date: 20080428
  Receipt Date: 20080416
  Transmission Date: 20081010
  Serious: Yes (Other)
  Sender: FDA-Public Use
  Company Number: AT-PFIZER INC-2008034218

PATIENT
  Sex: Female

DRUGS (2)
  1. GENOTROPIN [Suspect]
     Indication: TURNER'S SYNDROME
     Dosage: DAILY DOSE:2.4MG
     Dates: start: 20000601, end: 20080416
  2. ESTRADIOL [Concomitant]
     Dosage: DAILY DOSE:.2MG

REACTIONS (1)
  - CROHN'S DISEASE [None]
